FAERS Safety Report 8120556-5 (Version None)
Quarter: 2012Q1

REPORT INFORMATION
  Report Type: 
  Country: None (occurrence: None)
  Receive Date: 20120207
  Receipt Date: 20120130
  Transmission Date: 20120608
  Serious: Yes (Other)
  Sender: FDA-Public Use
  Company Number: AU-JNJFOC-20120113531

PATIENT
  Sex: Female

DRUGS (3)
  1. METHOTREXATE [Concomitant]
  2. STELARA [Suspect]
     Indication: PSORIASIS
     Route: 058
     Dates: start: 20111014
  3. STELARA [Suspect]
     Route: 058
     Dates: start: 20111111

REACTIONS (2)
  - PSORIATIC ARTHROPATHY [None]
  - PSORIASIS [None]
